FAERS Safety Report 9302103 (Version 2)
Quarter: 2013Q4

REPORT INFORMATION
  Report Type: Spontaneous
  Country: US (occurrence: US)
  Receive Date: 20130521
  Receipt Date: 20131108
  Transmission Date: 20140711
  Serious: Yes (Hospitalization)
  Sender: FDA-Public Use
  Company Number: US-B.I. PHARMACEUTICALS,INC./RIDGEFIELD-2013-BI-13967BP

PATIENT
  Sex: Male
  Weight: 144.24 kg

DRUGS (10)
  1. PRADAXA [Suspect]
     Indication: ANTICOAGULANT THERAPY
     Dosage: 300 MG
     Route: 048
     Dates: start: 20110211, end: 20110615
  2. PRADAXA [Suspect]
     Indication: ATRIAL FIBRILLATION
  3. COREG [Concomitant]
     Dosage: 12.25 MG
     Route: 048
  4. LASIX [Concomitant]
     Dosage: 160 MG
     Route: 048
  5. METOLAZONE [Concomitant]
     Dosage: 2.5 MG
     Route: 048
  6. LANTUS INSULIN [Concomitant]
     Dosage: 140 U
     Route: 058
  7. DIGOXIN [Concomitant]
     Dosage: 0.125 MG
     Route: 048
  8. LIPITOR [Concomitant]
     Dosage: 10 MG
     Route: 048
  9. MULTIVITAMIN [Concomitant]
     Route: 048
  10. LEVOXYL [Concomitant]
     Dosage: 75 MG
     Route: 048

REACTIONS (6)
  - Gastrointestinal haemorrhage [Unknown]
  - Anaemia [Unknown]
  - Coagulopathy [Unknown]
  - Renal failure acute [Unknown]
  - Cardiac failure congestive [Unknown]
  - Haematuria [Unknown]
